FAERS Safety Report 7738635-0 (Version None)
Quarter: 2011Q3

REPORT INFORMATION
  Report Type: 
  Country: None (occurrence: None)
  Receive Date: 20110908
  Receipt Date: 20110830
  Transmission Date: 20111222
  Serious: Yes (Hospitalization)
  Sender: FDA-Public Use
  Company Number: US-ASTRAZENECA-2011SE52015

PATIENT
  Age: 58 Year
  Sex: Male
  Weight: 90.7 kg

DRUGS (8)
  1. BARBUXIXN [Concomitant]
     Indication: ANXIETY
     Route: 048
  2. ZEN-X [Concomitant]
     Indication: GASTROOESOPHAGEAL REFLUX DISEASE
     Route: 048
  3. CARDIZINE [Concomitant]
     Indication: HYPERTENSION
     Route: 048
  4. CELEXIL [Concomitant]
     Indication: DEPRESSION
     Route: 048
  5. ZELEXAL [Concomitant]
     Indication: DEPRESSION
     Route: 048
  6. CATAPRES [Concomitant]
     Indication: HYPERTENSION
     Route: 048
  7. LAPHARMAKRYL [Concomitant]
     Dosage: 20/12 MG
     Route: 048
  8. SEROQUEL XR [Suspect]
     Indication: BIPOLAR DISORDER
     Route: 048
     Dates: start: 20080101

REACTIONS (2)
  - MENTAL DISORDER [None]
  - DRUG DOSE OMISSION [None]
